FAERS Safety Report 25553469 (Version 2)
Quarter: 2025Q3

REPORT INFORMATION
  Report Type: Spontaneous
  Country: US (occurrence: US)
  Receive Date: 20250715
  Receipt Date: 20250825
  Transmission Date: 20251021
  Serious: No
  Sender: ROCHE
  Company Number: US-ROCHE-10000334511

PATIENT
  Sex: Female
  Weight: 63.5 kg

DRUGS (18)
  1. XOLAIR [Suspect]
     Active Substance: OMALIZUMAB
     Indication: Urticaria
     Dosage: FORM STRENGTH: 300MG/2ML
     Route: 058
     Dates: end: 202506
  2. ALENDRONATE [Concomitant]
     Active Substance: ALENDRONATE SODIUM
  3. AMLODIPINE B SUS 1MG/ML [Concomitant]
  4. CITALOPRAM ? TAB 40MG [Concomitant]
  5. CLOBETASOL 1 POW [Concomitant]
  6. CLONIDINE PTW 0.3MG/24HR [Concomitant]
  7. HYDROXYZINE POW [Concomitant]
  8. LOSARTAN POT POW [Concomitant]
  9. PRAMIPEXOLE TB2 4.5MG [Concomitant]
  10. MUPIROCIN [Concomitant]
     Active Substance: MUPIROCIN
  11. HYDROXYZINE HYDROCHLORIDE [Concomitant]
     Active Substance: HYDROXYZINE HYDROCHLORIDE
  12. PREDNISONE [Concomitant]
     Active Substance: PREDNISONE
  13. TRETINOIN [Concomitant]
     Active Substance: TRETINOIN
  14. HYDROQUINONE [Concomitant]
     Active Substance: HYDROQUINONE
  15. TRIAMCINOLONE [Concomitant]
     Active Substance: TRIAMCINOLONE
  16. FLUCONAZOLE [Concomitant]
     Active Substance: FLUCONAZOLE
  17. VITAMIN D3 [Concomitant]
     Active Substance: CHOLECALCIFEROL
     Route: 048
  18. TYLENOL [Concomitant]
     Active Substance: ACETAMINOPHEN

REACTIONS (3)
  - Pruritus [Unknown]
  - Drug ineffective [Unknown]
  - Stasis dermatitis [Unknown]
